FAERS Safety Report 5025269-4 (Version None)
Quarter: 2006Q2

REPORT INFORMATION
  Report Type: 
  Country: None (occurrence: None)
  Receive Date: 20060613
  Receipt Date: 20060317
  Transmission Date: 20061013
  Serious: Yes (Disabling, Other)
  Sender: FDA-Public Use
  Company Number: US-BOEHRINGER INGELHEIM PHARMACEUTICALS, INC.-2006-BP-03061BP

PATIENT
  Age: 81 Year
  Sex: Male

DRUGS (11)
  1. FLOMAX [Suspect]
     Indication: BENIGN PROSTATIC HYPERPLASIA
     Route: 048
  2. LASIX [Concomitant]
  3. HYDROCHLOROTHIAZIDE [Concomitant]
  4. VITAMINS [Concomitant]
  5. CELEBREX [Concomitant]
  6. PREVACID [Concomitant]
  7. SPIRONOLACTONE [Concomitant]
  8. NEURONTIN [Concomitant]
  9. POTASSIUM [Concomitant]
  10. REQUIP [Concomitant]
  11. QUININE SULFATE [Concomitant]

REACTIONS (4)
  - BLINDNESS [None]
  - IRIS DISORDER [None]
  - VISION BLURRED [None]
  - VITREOUS FLOATERS [None]
